FAERS Safety Report 22593704 (Version 1)
Quarter: 2023Q2

REPORT INFORMATION
  Report Type: Spontaneous
  Country: EU (occurrence: EU)
  Receive Date: 20230613
  Receipt Date: 20230613
  Transmission Date: 20230721
  Serious: Yes (Hospitalization)
  Sender: FDA-Public Use
  Company Number: EU-ROCHE-3361267

PATIENT
  Age: 78 Year
  Sex: Male

DRUGS (6)
  1. METHOTREXATE [Suspect]
     Active Substance: METHOTREXATE
     Indication: Arthritis
  2. ETANERCEPT [Suspect]
     Active Substance: ETANERCEPT
     Indication: Arthritis
  3. CEFTRIAXONE [Suspect]
     Active Substance: CEFTRIAXONE
     Indication: Endocarditis bacterial
     Route: 040
  4. TOFACITINIB [Suspect]
     Active Substance: TOFACITINIB
     Indication: Arthritis
  5. TOCILIZUMAB [Suspect]
     Active Substance: TOCILIZUMAB
     Indication: Arthritis
  6. ANAKINRA [Suspect]
     Active Substance: ANAKINRA
     Indication: Arthritis

REACTIONS (4)
  - Endocarditis bacterial [Unknown]
  - Urticaria [Unknown]
  - Embolic stroke [Unknown]
  - Blood creatinine increased [Unknown]
